FAERS Safety Report 5814887-9 (Version None)
Quarter: 2008Q3

REPORT INFORMATION
  Report Type: 
  Country: None (occurrence: None)
  Receive Date: 20080718
  Receipt Date: 20080716
  Transmission Date: 20090109
  Serious: Yes (Other)
  Sender: FDA-Public Use
  Company Number: A0737901A

PATIENT
  Age: 22 Year
  Sex: Female
  Weight: 82 kg

DRUGS (1)
  1. ALLI [Suspect]
     Dates: start: 20080301

REACTIONS (3)
  - CERVIX DISORDER [None]
  - INCISION SITE HAEMORRHAGE [None]
  - WEIGHT INCREASED [None]
